FAERS Safety Report 7787700-0 (Version None)
Quarter: 2011Q3

REPORT INFORMATION
  Report Type: 
  Country: None (occurrence: None)
  Receive Date: 20110929
  Receipt Date: 20110926
  Transmission Date: 20111222
  Serious: Yes (Other)
  Sender: FDA-Public Use
  Company Number: DE-PFIZER INC-2011213869

PATIENT
  Sex: Female
  Weight: 60 kg

DRUGS (3)
  1. XALATAN [Suspect]
     Indication: GLAUCOMA
     Dosage: 1 DROP IN LEFT AND RIGHT EYE ONCE DAILY
     Dates: start: 20110101
  2. TRUSOPT [Suspect]
     Indication: GLAUCOMA
     Dosage: 3 DROPS DAILY IN BOTH LEFT AND RIGHT EYE
     Dates: start: 20110601
  3. CANDESARTAN CILEXETIL [Concomitant]
     Dosage: 8 MG, DAILY
     Dates: end: 20110801

REACTIONS (4)
  - BLOOD PRESSURE DECREASED [None]
  - FALL [None]
  - HEART RATE DECREASED [None]
  - LACERATION [None]
